FAERS Safety Report 8568071-9 (Version None)
Quarter: 2012Q3

REPORT INFORMATION
  Report Type: 
  Country: None (occurrence: None)
  Receive Date: 20120803
  Receipt Date: 20120705
  Transmission Date: 20120928
  Serious: No
  Sender: FDA-Public Use
  Company Number: US-ABBOTT-12P-163-0953176-00

PATIENT
  Sex: Female
  Weight: 68.1 kg

DRUGS (5)
  1. NIASPAN [Suspect]
     Indication: ILL-DEFINED DISORDER
     Dosage: AT BEDTIME
     Dates: start: 20120621, end: 20120702
  2. COREG [Concomitant]
     Indication: PRODUCT USED FOR UNKNOWN INDICATION
  3. NIASPAN [Suspect]
     Indication: PRODUCT USED FOR UNKNOWN INDICATION
     Dosage: AT BEDTIME
     Dates: start: 20120702
  4. ASPIRIN [Concomitant]
     Indication: PRODUCT USED FOR UNKNOWN INDICATION
  5. LEVOTHYROXINE SODIUM [Concomitant]
     Indication: PRODUCT USED FOR UNKNOWN INDICATION

REACTIONS (4)
  - NAUSEA [None]
  - FLUSHING [None]
  - PRURITUS GENERALISED [None]
  - PRURITUS [None]
